FAERS Safety Report 4485457-2 (Version None)
Quarter: 2004Q4

REPORT INFORMATION
  Report Type: 
  Country: None (occurrence: None)
  Receive Date: 20041026
  Receipt Date: 20041015
  Transmission Date: 20050328
  Serious: Yes (Other)
  Sender: FDA-Public Use
  Company Number: PHEH2004US11148

PATIENT
  Age: 55 Year
  Sex: Female
  Weight: 90 kg

DRUGS (6)
  1. ZOMETA [Suspect]
     Indication: METASTASES TO BONE
     Dosage: 4MG Q4W
     Route: 042
     Dates: start: 20011201
  2. FEMARA [Concomitant]
  3. CPT-11 [Concomitant]
  4. TAXOTERE [Concomitant]
  5. AROMASIN [Concomitant]
  6. FASLODEX [Concomitant]

REACTIONS (2)
  - DENTAL OPERATION [None]
  - IMPAIRED HEALING [None]
